FAERS Safety Report 5895246-X (Version None)
Quarter: 2008Q3

REPORT INFORMATION
  Report Type: 
  Country: None (occurrence: None)
  Receive Date: 20080924
  Receipt Date: 20080918
  Transmission Date: 20090109
  Serious: Yes (Hospitalization)
  Sender: FDA-Public Use
  Company Number: B0537761A

PATIENT
  Age: 33 Year
  Sex: Male

DRUGS (3)
  1. ZIDOVUDINE [Suspect]
     Indication: ACQUIRED IMMUNODEFICIENCY SYNDROME
  2. LAMIVUDINE [Suspect]
     Indication: ACQUIRED IMMUNODEFICIENCY SYNDROME
  3. EFAVIRENZ [Suspect]
     Indication: ACQUIRED IMMUNODEFICIENCY SYNDROME

REACTIONS (12)
  - APLASIA PURE RED CELL [None]
  - APLASTIC ANAEMIA [None]
  - ASTHENIA [None]
  - BONE MARROW FAILURE [None]
  - ERECTILE DYSFUNCTION [None]
  - MARROW HYPERPLASIA [None]
  - NORMOCHROMIC NORMOCYTIC ANAEMIA [None]
  - PALPITATIONS [None]
  - PLATELET COUNT DECREASED [None]
  - RED BLOOD CELL COUNT DECREASED [None]
  - TACHYPNOEA [None]
  - WHITE BLOOD CELL COUNT DECREASED [None]
